FAERS Safety Report 13947002 (Version 1)
Quarter: 2017Q3

REPORT INFORMATION
  Report Type: Spontaneous
  Country: US (occurrence: US)
  Receive Date: 20170907
  Receipt Date: 20170907
  Transmission Date: 20171128
  Serious: Yes (Other)
  Sender: FDA-Public Use
  Company Number: US-GLAXOSMITHKLINE-US2017GSK137677

PATIENT
  Age: 69 Year
  Sex: Female

DRUGS (4)
  1. OPSUMIT [Concomitant]
     Active Substance: MACITENTAN
  2. FLOLAN [Suspect]
     Active Substance: EPOPROSTENOL SODIUM
     Indication: PULMONARY HYPERTENSION
     Dosage: 25 DF, CO
     Dates: start: 20150508
  3. FLOLAN [Suspect]
     Active Substance: EPOPROSTENOL SODIUM
     Indication: PULMONARY HYPERTENSION
     Dosage: UNK
     Dates: start: 20170810
  4. REVATIO [Concomitant]
     Active Substance: SILDENAFIL CITRATE

REACTIONS (5)
  - Catheter site extravasation [Unknown]
  - Catheter site haemorrhage [Unknown]
  - Catheterisation cardiac [Unknown]
  - General physical health deterioration [Recovering/Resolving]
  - Central venous catheterisation [Unknown]

NARRATIVE: CASE EVENT DATE: 20170831
